FAERS Safety Report 11814249 (Version 1)
Quarter: 2015Q4

REPORT INFORMATION
  Report Type: Spontaneous
  Country: US (occurrence: US)
  Receive Date: 20151209
  Receipt Date: 20151209
  Transmission Date: 20160305
  Serious: No
  Sender: FDA-Public Use
  Company Number: US-BAYER-2015-480088

PATIENT
  Age: 62 Year
  Sex: Female

DRUGS (2)
  1. CLIMARA PRO [Suspect]
     Active Substance: ESTRADIOL\LEVONORGESTREL
     Dosage: UNK
     Route: 062
     Dates: start: 2004
  2. MOBIC [Suspect]
     Active Substance: MELOXICAM
     Indication: PAIN
     Route: 048

REACTIONS (5)
  - Palpitations [None]
  - Anxiety [None]
  - Stress [None]
  - Panic attack [None]
  - Pain [None]
